FAERS Safety Report 4922155-2 (Version None)
Quarter: 2006Q1

REPORT INFORMATION
  Report Type: 
  Country: None (occurrence: None)
  Receive Date: 20060224
  Receipt Date: 20050421
  Transmission Date: 20060701
  Serious: Yes (Hospitalization, Disabling)
  Sender: FDA-Public Use
  Company Number: US-MERCK-0504USA04237

PATIENT
  Age: 60 Year
  Sex: Male
  Weight: 82 kg

DRUGS (4)
  1. VIOXX [Suspect]
     Indication: ARTHRITIS
     Route: 048
     Dates: start: 19990101, end: 20020101
  2. TYLENOL (CAPLET) [Concomitant]
     Route: 065
  3. CARDIZEM CD [Concomitant]
     Indication: HYPERTENSION
     Route: 065
  4. PRAVACHOL [Concomitant]
     Indication: HYPERLIPIDAEMIA
     Route: 065

REACTIONS (9)
  - ADVERSE EVENT [None]
  - ARTERIAL OCCLUSIVE DISEASE [None]
  - CARDIOVASCULAR DISORDER [None]
  - CARPAL TUNNEL SYNDROME [None]
  - CEREBROVASCULAR ACCIDENT [None]
  - FALL [None]
  - RIB FRACTURE [None]
  - TONGUE HAEMORRHAGE [None]
  - VERTEBRAL INJURY [None]
